FAERS Safety Report 6960625-6 (Version None)
Quarter: 2010Q3

REPORT INFORMATION
  Report Type: 
  Country: None (occurrence: None)
  Receive Date: 20100827
  Receipt Date: 20100813
  Transmission Date: 20110219
  Serious: Yes (Hospitalization)
  Sender: FDA-Public Use
  Company Number: 1000015840

PATIENT
  Age: 84 Year
  Sex: Male

DRUGS (3)
  1. NEBIVOLOL HCL [Suspect]
  2. PROPAFENONE HYDROCHLORIDE [Suspect]
  3. SPIROFUR [Suspect]

REACTIONS (1)
  - BILIARY COLIC [None]
